FAERS Safety Report 25348806 (Version 1)
Quarter: 2025Q2

REPORT INFORMATION
  Report Type: Spontaneous
  Country: ES (occurrence: ES)
  Receive Date: 20250522
  Receipt Date: 20250522
  Transmission Date: 20250716
  Serious: Yes (Hospitalization, Other)
  Sender: JAZZ
  Company Number: None

PATIENT

DRUGS (17)
  1. EPIDIOLEX [Suspect]
     Active Substance: CANNABIDIOL
     Indication: Lennox-Gastaut syndrome
  2. EPIDIOLEX [Suspect]
     Active Substance: CANNABIDIOL
  3. KEPPRA [Suspect]
     Active Substance: LEVETIRACETAM
     Indication: Lennox-Gastaut syndrome
  4. KEPPRA [Suspect]
     Active Substance: LEVETIRACETAM
     Indication: Off label use
  5. VIMPAT [Suspect]
     Active Substance: LACOSAMIDE
     Indication: Lennox-Gastaut syndrome
     Dosage: 9 MILLILITER, BID
  6. VIMPAT [Suspect]
     Active Substance: LACOSAMIDE
     Indication: Off label use
  7. FINTEPLA [Suspect]
     Active Substance: FENFLURAMINE
     Indication: Lennox-Gastaut syndrome
     Dosage: 3.6 MILLILITER, BID
  8. CLOBAZAM [Suspect]
     Active Substance: CLOBAZAM
     Indication: Lennox-Gastaut syndrome
  9. INOVELON [Suspect]
     Active Substance: RUFINAMIDE
     Indication: Lennox-Gastaut syndrome
  10. PERAMPANEL [Suspect]
     Active Substance: PERAMPANEL
     Indication: Lennox-Gastaut syndrome
  11. PREDNISONE [Suspect]
     Active Substance: PREDNISONE
     Indication: Lennox-Gastaut syndrome
  12. VALPROIC ACID [Concomitant]
     Active Substance: VALPROIC ACID
     Indication: Lennox-Gastaut syndrome
     Dosage: 460 MILLIGRAM, BID
  13. TOPIRAMATE [Concomitant]
     Active Substance: TOPIRAMATE
     Indication: Lennox-Gastaut syndrome
  14. ETHOSUXIMIDE [Concomitant]
     Active Substance: ETHOSUXIMIDE
     Indication: Lennox-Gastaut syndrome
  15. PYRIDOXINE [Concomitant]
     Active Substance: PYRIDOXINE
     Indication: Lennox-Gastaut syndrome
  16. RISPERIDONE [Concomitant]
     Active Substance: RISPERIDONE
     Indication: Lennox-Gastaut syndrome
  17. RIVOTRIL [Concomitant]
     Active Substance: CLONAZEPAM
     Indication: Lennox-Gastaut syndrome

REACTIONS (14)
  - Upper gastrointestinal haemorrhage [Unknown]
  - Bronchial aspiration procedure [Unknown]
  - Respiratory syncytial virus infection [Unknown]
  - Clonic convulsion [Recovered/Resolved]
  - Tonic convulsion [Not Recovered/Not Resolved]
  - Generalised tonic-clonic seizure [Recovered/Resolved]
  - Nervousness [Unknown]
  - Atonic seizures [Recovered/Resolved]
  - Crying [Unknown]
  - Sleep disorder [Unknown]
  - Somnolence [Unknown]
  - Pyrexia [Unknown]
  - Vomiting [Unknown]
  - Off label use [Unknown]
